FAERS Safety Report 8196122-2 (Version None)
Quarter: 2012Q1

REPORT INFORMATION
  Report Type: 
  Country: None (occurrence: None)
  Receive Date: 20120223
  Receipt Date: 20110801
  Transmission Date: 20120608
  Serious: Yes (Life-Threatening, Hospitalization)
  Sender: FDA-Public Use
  Company Number: WAES 1108USA00262

PATIENT
  Age: 90 Year
  Sex: Female

DRUGS (1)
  1. ZOCOR [Suspect]
     Indication: LIPIDS INCREASED
     Dosage: UNK/UNK/PO
     Route: 048
     Dates: start: 20100301

REACTIONS (1)
  - RHABDOMYOLYSIS [None]
